FAERS Safety Report 9694314 (Version 3)
Quarter: 2015Q3

REPORT INFORMATION
  Report Type: Spontaneous
  Country: US (occurrence: US)
  Receive Date: 20131118
  Receipt Date: 20150803
  Transmission Date: 20151125
  Serious: No
  Sender: FDA-Public Use
  Company Number: US-GILEAD-2007-0012986

PATIENT
  Sex: Female

DRUGS (7)
  1. UNSPECIFIED ANTIBIOTIC [Concomitant]
     Active Substance: UNSPECIFIED INGREDIENT
     Indication: NASAL CONGESTION
     Route: 065
  2. COUMADINE [Concomitant]
     Active Substance: WARFARIN SODIUM
     Route: 065
  3. ZOCOR [Concomitant]
     Active Substance: SIMVASTATIN
     Route: 065
  4. LETAIRIS [Suspect]
     Active Substance: AMBRISENTAN
     Indication: PULMONARY ARTERIAL HYPERTENSION
     Route: 065
     Dates: start: 20070729
  5. FUROSEMIDE. [Concomitant]
     Active Substance: FUROSEMIDE
     Route: 065
  6. PREVACID [Concomitant]
     Active Substance: LANSOPRAZOLE
     Route: 065
  7. OXYGEN. [Concomitant]
     Active Substance: OXYGEN
     Route: 055

REACTIONS (5)
  - Somnolence [Not Recovered/Not Resolved]
  - Upper respiratory tract congestion [Not Recovered/Not Resolved]
  - Feeling abnormal [Not Recovered/Not Resolved]
  - Palpitations [Recovering/Resolving]
  - Oropharyngeal pain [Recovered/Resolved]

NARRATIVE: CASE EVENT DATE: 20070729
